FAERS Safety Report 9564735 (Version 2)
Quarter: 2013Q4

REPORT INFORMATION
  Report Type: Spontaneous
  Country: US (occurrence: US)
  Receive Date: 20130930
  Receipt Date: 20131105
  Transmission Date: 20140711
  Serious: No
  Sender: FDA-Public Use
  Company Number: US-PFIZER INC-2013279810

PATIENT
  Age: 55 Year
  Sex: Female
  Weight: 63.49 kg

DRUGS (1)
  1. LYRICA [Suspect]
     Indication: NEUROPATHY PERIPHERAL
     Dosage: 150 MG, 2X/DAY
     Dates: end: 201307

REACTIONS (7)
  - Pruritus [Unknown]
  - Rash [Unknown]
  - Blister [Unknown]
  - Pyrexia [Unknown]
  - Malaise [Unknown]
  - Pain in extremity [Unknown]
  - Nerve injury [Unknown]
